FAERS Safety Report 6425974-9 (Version None)
Quarter: 2009Q4

REPORT INFORMATION
  Report Type: 
  Country: None (occurrence: None)
  Receive Date: 20091103
  Receipt Date: 20091103
  Transmission Date: 20100525
  Serious: No
  Sender: FDA-Public Use
  Company Number: None

PATIENT
  Age: 59 Year
  Sex: Male

DRUGS (2)
  1. FLUOROURACIL [Suspect]
     Dosage: 4220 MG ONCE IV
     Route: 042
     Dates: start: 20090928, end: 20090928
  2. LEUCOVORIN CALCIUM [Suspect]
     Dosage: 700 MG ONCE IV
     Route: 042
     Dates: start: 20090928, end: 20090928

REACTIONS (2)
  - DRUG TOXICITY [None]
  - INCORRECT DRUG ADMINISTRATION RATE [None]
